FAERS Safety Report 9017796 (Version 6)
Quarter: 2014Q1

REPORT INFORMATION
  Report Type: Spontaneous
  Country: US (occurrence: US)
  Receive Date: 20130118
  Receipt Date: 20140328
  Transmission Date: 20141002
  Serious: Yes (Hospitalization)
  Sender: FDA-Public Use
  Company Number: US-BIOGENIDEC-2012BI063795

PATIENT
  Age: 57 Year
  Sex: Female

DRUGS (6)
  1. AVONEX [Suspect]
     Indication: RELAPSING-REMITTING MULTIPLE SCLEROSIS
     Route: 030
  2. AVONEX [Suspect]
     Indication: RELAPSING-REMITTING MULTIPLE SCLEROSIS
     Route: 030
     Dates: start: 20040213
  3. AVONEX [Suspect]
     Indication: RELAPSING-REMITTING MULTIPLE SCLEROSIS
     Route: 030
     Dates: start: 20050213, end: 20120401
  4. AVONEX [Suspect]
     Indication: RELAPSING-REMITTING MULTIPLE SCLEROSIS
     Route: 030
     Dates: start: 20120408
  5. AVONEX [Suspect]
     Indication: RELAPSING-REMITTING MULTIPLE SCLEROSIS
     Route: 030
     Dates: start: 20121120
  6. AVONEX [Suspect]
     Indication: RELAPSING-REMITTING MULTIPLE SCLEROSIS
     Route: 030
     Dates: start: 2014

REACTIONS (17)
  - Brain neoplasm malignant [Not Recovered/Not Resolved]
  - Loss of control of legs [Recovered/Resolved]
  - Central nervous system lesion [Not Recovered/Not Resolved]
  - Abasia [Recovered/Resolved]
  - Brain oedema [Not Recovered/Not Resolved]
  - Cough [Not Recovered/Not Resolved]
  - Mobility decreased [Not Recovered/Not Resolved]
  - Panic reaction [Unknown]
  - Fear [Unknown]
  - Gait disturbance [Unknown]
  - Intracranial pressure increased [Recovered/Resolved]
  - Fall [Recovered/Resolved]
  - Musculoskeletal disorder [Recovered/Resolved]
  - Phobia [Recovered/Resolved]
  - Dysgraphia [Not Recovered/Not Resolved]
  - Anxiety [Unknown]
  - Platelet count decreased [Unknown]
